FAERS Safety Report 17658583 (Version 1)
Quarter: 2020Q2

REPORT INFORMATION
  Report Type: Spontaneous
  Country: US (occurrence: US)
  Receive Date: 20200412
  Receipt Date: 20200412
  Transmission Date: 20200713
  Serious: No
  Sender: FDA-Public Use
  Company Number: US-SA-2020SA089693

PATIENT
  Sex: Female

DRUGS (1)
  1. APIDRA [Suspect]
     Active Substance: INSULIN GLULISINE
     Indication: TYPE 2 DIABETES MELLITUS
     Dosage: SHE TAKES 30-50 UNITS TOTAL, BUT TAKE MEDICATION WITH EVERY MEAL(2-3 TIMES A DAY)

REACTIONS (1)
  - Wrong technique in device usage process [Unknown]
